FAERS Safety Report 16382027 (Version 1)
Quarter: 2019Q2

REPORT INFORMATION
  Report Type: Spontaneous
  Country: US (occurrence: US)
  Receive Date: 20190603
  Receipt Date: 20190603
  Transmission Date: 20190711
  Serious: No
  Sender: FDA-Public Use
  Company Number: PHEH2019US022882

PATIENT
  Age: 68 Year
  Sex: Female
  Weight: 78.2 kg

DRUGS (2)
  1. TAFINLAR [Suspect]
     Active Substance: DABRAFENIB MESYLATE
     Indication: INTESTINAL METASTASIS
     Dosage: UNK
     Route: 048
     Dates: start: 20190503
  2. MEKINIST [Suspect]
     Active Substance: TRAMETINIB DIMETHYL SULFOXIDE
     Indication: INTESTINAL METASTASIS
     Dosage: 2 MG, QD
     Route: 048
     Dates: start: 20190503

REACTIONS (3)
  - Abdominal pain upper [Unknown]
  - Pyrexia [Unknown]
  - Oral pain [Unknown]

NARRATIVE: CASE EVENT DATE: 20190525
